FAERS Safety Report 8513652-1 (Version None)
Quarter: 2012Q3

REPORT INFORMATION
  Report Type: 
  Country: None (occurrence: None)
  Receive Date: 20120717
  Receipt Date: 20120713
  Transmission Date: 20120928
  Serious: Yes (Other)
  Sender: FDA-Public Use
  Company Number: US-PFIZER INC-2012170755

PATIENT
  Sex: Female
  Weight: 90.703 kg

DRUGS (4)
  1. MOBIC [Concomitant]
     Dosage: UNK
  2. METFORMIN [Concomitant]
     Indication: BLOOD GLUCOSE ABNORMAL
     Dosage: UNK
  3. PRISTIQ [Suspect]
     Indication: PANIC ATTACK
     Dosage: 100 MG, DAILY
  4. PRAVASTATIN [Concomitant]
     Indication: BLOOD CHOLESTEROL ABNORMAL
     Dosage: UNK

REACTIONS (1)
  - TACHYCARDIA [None]
